FAERS Safety Report 15435606 (Version 1)
Quarter: 2018Q3

REPORT INFORMATION
  Report Type: Spontaneous
  Country: TR (occurrence: TR)
  Receive Date: 20180927
  Receipt Date: 20180927
  Transmission Date: 20181010
  Serious: Yes (Life-Threatening)
  Sender: FDA-Public Use
  Company Number: TR-009507513-1809TUR006661

PATIENT
  Age: 91 Year
  Sex: Female
  Weight: 63 kg

DRUGS (6)
  1. LIPITOR [Concomitant]
     Active Substance: ATORVASTATIN CALCIUM
     Dosage: 10 MG, UNK
     Route: 048
     Dates: start: 20180612, end: 20180712
  2. CO?DIOVAN [Concomitant]
     Active Substance: HYDROCHLOROTHIAZIDE\VALSARTAN
     Dosage: 80/12.5 MG
     Route: 048
     Dates: start: 20180612, end: 20180612
  3. VASOXEN [Concomitant]
     Dosage: 12.5 MG
     Route: 048
     Dates: start: 20180612, end: 20180612
  4. SIMPONI [Suspect]
     Active Substance: GOLIMUMAB
     Dosage: UNK
  5. INVANZ [Suspect]
     Active Substance: ERTAPENEM SODIUM
     Indication: URINARY TRACT INFECTION
     Dosage: 1 G, UNK
     Dates: start: 20180604, end: 20180612
  6. JANUMET [Suspect]
     Active Substance: METFORMIN HYDROCHLORIDE\SITAGLIPTIN PHOSPHATE
     Route: 048

REACTIONS (3)
  - Nystagmus [Recovered/Resolved]
  - Seizure [Recovered/Resolved]
  - Unresponsive to stimuli [Recovered/Resolved]

NARRATIVE: CASE EVENT DATE: 20180612
